FAERS Safety Report 23124545 (Version 2)
Quarter: 2023Q4

REPORT INFORMATION
  Report Type: Spontaneous
  Country: US (occurrence: US)
  Receive Date: 20231030
  Receipt Date: 20231107
  Transmission Date: 20240109
  Serious: No
  Sender: FDA-Public Use
  Company Number: US-OPELLA-2023OHG009737

PATIENT

DRUGS (1)
  1. ACT RESTORING ANTICAVITY FLUORIDE MINT BURST [Suspect]
     Active Substance: SODIUM FLUORIDE
     Dosage: STRENGTH:0.266 MG/532 ML
     Route: 048

REACTIONS (1)
  - Oral discomfort [Unknown]
